FAERS Safety Report 8226790-8 (Version None)
Quarter: 2012Q1

REPORT INFORMATION
  Report Type: 
  Country: None (occurrence: None)
  Receive Date: 20120322
  Receipt Date: 20120312
  Transmission Date: 20120608
  Serious: Yes (Hospitalization)
  Sender: FDA-Public Use
  Company Number: US-BAYER-2011-080621

PATIENT
  Sex: Female
  Weight: 86.168 kg

DRUGS (5)
  1. MEDROXYPROGESTERONE [Concomitant]
  2. TRIPHASIL-21 [Concomitant]
  3. IBUPROFEN TABLETS [Concomitant]
     Indication: ANALGESIC THERAPY
     Dosage: 200 MG, PRN
  4. YAZ [Suspect]
     Dosage: UNK
     Dates: start: 20080101
  5. LEVORA 0.15/30-28 [Concomitant]

REACTIONS (8)
  - ANXIETY [None]
  - PARAESTHESIA [None]
  - EMOTIONAL DISTRESS [None]
  - INJURY [None]
  - CEREBROVASCULAR ACCIDENT [None]
  - HYPOAESTHESIA [None]
  - PAIN [None]
  - DYSARTHRIA [None]
